FAERS Safety Report 15962260 (Version 1)
Quarter: 2019Q1

REPORT INFORMATION
  Report Type: Spontaneous
  Country: US (occurrence: US)
  Receive Date: 20190123
  Receipt Date: 20190123
  Transmission Date: 20190417
  Serious: Yes (Death)
  Sender: FDA-Public Use
  Company Number: None

PATIENT
  Age: 72 Year
  Sex: Female
  Weight: 55.3 kg

DRUGS (1)
  1. YESCARTA [Suspect]
     Active Substance: AXICABTAGENE CILOLEUCEL
     Indication: DIFFUSE LARGE B-CELL LYMPHOMA
     Dates: start: 20181210

REACTIONS (11)
  - Delirium [None]
  - Neurotoxicity [None]
  - Haemodynamic instability [None]
  - Intestinal ischaemia [None]
  - Haematoma [None]
  - Cytokine release syndrome [None]
  - Disorientation [None]
  - Fall [None]
  - Skin injury [None]
  - Subdural hygroma [None]
  - Pneumatosis intestinalis [None]

NARRATIVE: CASE EVENT DATE: 20190122
